FAERS Safety Report 10187332 (Version 1)
Quarter: 2014Q2

REPORT INFORMATION
  Report Type: Spontaneous
  Country: US (occurrence: US)
  Receive Date: 20140522
  Receipt Date: 20140522
  Transmission Date: 20141212
  Serious: No
  Sender: FDA-Public Use
  Company Number: US-PFIZER INC-2014135329

PATIENT
  Sex: 0

DRUGS (3)
  1. LYRICA [Suspect]
     Dosage: UNK
  2. TRAMADOL HCL [Suspect]
     Dosage: UNK
  3. CYMBALTA [Suspect]
     Dosage: UNK

REACTIONS (7)
  - Skin burning sensation [Unknown]
  - Paraesthesia [Unknown]
  - Muscle twitching [Unknown]
  - Back pain [Unknown]
  - Pruritus [Unknown]
  - Formication [Unknown]
  - Malaise [Unknown]
